FAERS Safety Report 23927191 (Version 5)
Quarter: 2024Q3

REPORT INFORMATION
  Report Type: Spontaneous
  Country: CA (occurrence: CA)
  Receive Date: 20240531
  Receipt Date: 20240906
  Transmission Date: 20241016
  Serious: Yes (Hospitalization)
  Sender: TEVA
  Company Number: CA-TEVA-VS-3203114

PATIENT
  Age: 35 Year
  Sex: Female

DRUGS (32)
  1. QUETIAPINE [Suspect]
     Active Substance: QUETIAPINE
     Indication: Product used for unknown indication
     Route: 065
  2. QUETIAPINE [Suspect]
     Active Substance: QUETIAPINE
     Indication: Product used for unknown indication
     Route: 048
  3. DEXTROAMPHETAMINE [Concomitant]
     Active Substance: DEXTROAMPHETAMINE
     Indication: Product used for unknown indication
     Dosage: DESCRIPTION: DEXAMFETAMINE MYLAN
     Route: 065
  4. LEVOTHYROXINE [Concomitant]
     Active Substance: LEVOTHYROXINE\LEVOTHYROXINE SODIUM
     Indication: Product used for unknown indication
     Route: 065
  5. METHADONE [Concomitant]
     Active Substance: METHADONE HYDROCHLORIDE
     Indication: Product used for unknown indication
     Route: 065
  6. MORPHINE SULFATE [Concomitant]
     Active Substance: MORPHINE SULFATE
     Indication: Product used for unknown indication
     Route: 065
  7. PROPRANOLOL [Concomitant]
     Active Substance: PROPRANOLOL HYDROCHLORIDE
     Indication: Product used for unknown indication
     Route: 065
  8. MORPHINE [Suspect]
     Active Substance: MORPHINE
     Indication: Product used for unknown indication
     Route: 065
  9. MORPHINE [Suspect]
     Active Substance: MORPHINE
     Indication: Product used for unknown indication
     Route: 048
  10. MORPHINE [Suspect]
     Active Substance: MORPHINE
     Indication: Product used for unknown indication
     Route: 048
  11. MORPHINE [Suspect]
     Active Substance: MORPHINE
     Indication: Product used for unknown indication
     Route: 048
  12. CLONAZEPAM [Suspect]
     Active Substance: CLONAZEPAM
     Indication: Product used for unknown indication
     Route: 065
  13. COCAINE [Interacting]
     Active Substance: COCAINE
     Indication: Product used for unknown indication
     Route: 065
  14. ALCOHOL [Interacting]
     Active Substance: ALCOHOL
     Indication: Product used for unknown indication
     Route: 065
  15. LEVOTHYROXINE SODIUM [Interacting]
     Active Substance: LEVOTHYROXINE SODIUM
     Indication: Product used for unknown indication
     Route: 065
  16. FENTANYL [Suspect]
     Active Substance: FENTANYL\FENTANYL CITRATE
     Indication: Product used for unknown indication
     Route: 065
  17. METHADONE [Interacting]
     Active Substance: METHADONE HYDROCHLORIDE
     Indication: Product used for unknown indication
     Route: 065
  18. METHADONE [Interacting]
     Active Substance: METHADONE HYDROCHLORIDE
     Indication: Product used for unknown indication
     Route: 065
  19. METHAMPHETAMINE [Interacting]
     Active Substance: METHAMPHETAMINE
     Indication: Product used for unknown indication
     Route: 065
  20. MORPHINE [Interacting]
     Active Substance: MORPHINE
     Indication: Product used for unknown indication
     Route: 065
  21. TEMAZEPAM [Interacting]
     Active Substance: TEMAZEPAM
     Indication: Product used for unknown indication
     Route: 065
  22. PRAZOSIN [Suspect]
     Active Substance: PRAZOSIN\PRAZOSIN HYDROCHLORIDE
     Indication: Product used for unknown indication
     Route: 065
  23. PRAZOSIN [Suspect]
     Active Substance: PRAZOSIN\PRAZOSIN HYDROCHLORIDE
     Indication: Product used for unknown indication
     Route: 065
  24. PROPRANOLOL [Suspect]
     Active Substance: PROPRANOLOL HYDROCHLORIDE
     Indication: Product used for unknown indication
     Route: 065
  25. DEXTROAMPHETAMINE [Suspect]
     Active Substance: DEXTROAMPHETAMINE
     Indication: Product used for unknown indication
     Route: 065
  26. PRAZOSIN [Concomitant]
     Active Substance: PRAZOSIN\PRAZOSIN HYDROCHLORIDE
     Indication: Product used for unknown indication
     Route: 065
  27. TEMAZEPAM [Concomitant]
     Active Substance: TEMAZEPAM
     Indication: Product used for unknown indication
     Route: 065
  28. QUETIAPINE [Concomitant]
     Active Substance: QUETIAPINE
     Indication: Product used for unknown indication
     Route: 065
  29. CLONAZEPAM [Concomitant]
     Active Substance: CLONAZEPAM
     Indication: Product used for unknown indication
     Route: 065
  30. METHADOSE [Interacting]
     Active Substance: METHADONE HYDROCHLORIDE
     Indication: Drug use disorder
     Dosage: METHADOSE DYE FREE,?SUGAR FREE,?UNFLAVORED
     Route: 048
  31. METHADOSE [Interacting]
     Active Substance: METHADONE HYDROCHLORIDE
     Indication: Drug use disorder
     Route: 048
  32. METHADOSE [Interacting]
     Active Substance: METHADONE HYDROCHLORIDE
     Indication: Drug use disorder
     Route: 048

REACTIONS (15)
  - Abdominal pain upper [Recovering/Resolving]
  - Anxiety [Recovering/Resolving]
  - Arthralgia [Recovering/Resolving]
  - Myalgia [Recovering/Resolving]
  - Mydriasis [Recovering/Resolving]
  - Piloerection [Recovering/Resolving]
  - Restlessness [Recovering/Resolving]
  - Substance use disorder [Recovering/Resolving]
  - Suicidal ideation [Recovering/Resolving]
  - Psychiatric symptom [Recovering/Resolving]
  - Drug abuse [Recovering/Resolving]
  - Drug interaction [Recovering/Resolving]
  - Drug withdrawal syndrome [Recovering/Resolving]
  - Substance use [Recovering/Resolving]
  - Drug withdrawal syndrome [Recovering/Resolving]
